FAERS Safety Report 5713302-3 (Version None)
Quarter: 2008Q2

REPORT INFORMATION
  Report Type: 
  Country: None (occurrence: None)
  Receive Date: 20080422
  Receipt Date: 20080410
  Transmission Date: 20081010
  Serious: Yes (Death, Life-Threatening, Hospitalization, Other)
  Sender: FDA-Public Use
  Company Number: JP-PFIZER INC-2007072131

PATIENT
  Sex: Male
  Weight: 52.5 kg

DRUGS (26)
  1. VFEND [Suspect]
     Indication: PNEUMONIA BACTERIAL
     Route: 042
     Dates: start: 20060710, end: 20060715
  2. BIAPENEM [Concomitant]
     Route: 042
     Dates: start: 20060710, end: 20060710
  3. ORGARAN [Concomitant]
     Route: 042
  4. GRAN [Concomitant]
     Route: 042
  5. MINOMYCIN [Concomitant]
     Route: 042
     Dates: start: 20060710, end: 20060710
  6. BENAMBAX [Concomitant]
     Route: 042
     Dates: start: 20060711, end: 20060713
  7. TARGOCID [Concomitant]
     Route: 042
  8. GAMIMUNE N 5% [Concomitant]
     Route: 042
     Dates: start: 20060711, end: 20060712
  9. MAGNESIUM OXIDE [Concomitant]
     Route: 048
  10. BIOFERMIN R [Concomitant]
     Route: 048
  11. ZOVIRAX [Concomitant]
     Route: 048
  12. POLYMYXIN B SULFATE [Concomitant]
     Route: 048
  13. URSO 250 [Concomitant]
     Route: 048
  14. ALLOID [Concomitant]
     Route: 048
  15. POLAPREZINC [Concomitant]
     Route: 048
  16. NOVOLIN R [Concomitant]
     Route: 042
  17. MICAFUNGIN [Concomitant]
     Route: 042
     Dates: start: 20060624, end: 20060709
  18. DIFLUCAN [Concomitant]
     Route: 048
     Dates: start: 20060621, end: 20060716
  19. HANP [Concomitant]
     Route: 042
  20. LASIX [Concomitant]
     Route: 042
  21. NITOROL [Concomitant]
     Route: 042
  22. MIDAZOLAM HCL [Concomitant]
     Route: 042
  23. CRITPAN [Concomitant]
     Route: 042
  24. ABBOKINASE [Concomitant]
     Route: 042
     Dates: start: 20060720, end: 20060725
  25. LIPLE [Concomitant]
     Route: 042
     Dates: start: 20060720, end: 20060725
  26. DALTEPARIN SODIUM [Concomitant]
     Route: 042
     Dates: start: 20060725, end: 20060725

REACTIONS (5)
  - CARDIAC FAILURE CONGESTIVE [None]
  - HYPERBILIRUBINAEMIA [None]
  - RENAL FAILURE ACUTE [None]
  - RESPIRATORY FAILURE [None]
  - THROMBOTIC MICROANGIOPATHY [None]
